FAERS Safety Report 16066373 (Version 7)
Quarter: 2022Q2

REPORT INFORMATION
  Report Type: Spontaneous
  Country: GB (occurrence: GB)
  Receive Date: 20190313
  Receipt Date: 20220503
  Transmission Date: 20220721
  Serious: Yes (Hospitalization, Other)
  Sender: FDA-Public Use
  Company Number: None

PATIENT
  Sex: Male

DRUGS (2)
  1. ARIPIPRAZOLE [Suspect]
     Active Substance: ARIPIPRAZOLE
     Indication: Product used for unknown indication
     Dosage: UNKNOWN
     Route: 065
     Dates: start: 201902, end: 20190225
  2. CLOZARIL [Suspect]
     Active Substance: CLOZAPINE
     Indication: Schizophrenia
     Route: 048
     Dates: start: 20020712

REACTIONS (6)
  - Tachycardia [Unknown]
  - Malaise [Unknown]
  - Hyperlipidaemia [Unknown]
  - Blood test abnormal [Unknown]
  - Hypertension [Unknown]
  - Hospitalisation [Unknown]

NARRATIVE: CASE EVENT DATE: 20190101
